FAERS Safety Report 6018170-0 (Version None)
Quarter: 2008Q4

REPORT INFORMATION
  Report Type: 
  Country: None (occurrence: None)
  Receive Date: 20081223
  Receipt Date: 20081212
  Transmission Date: 20090506
  Serious: Yes (Hospitalization)
  Sender: FDA-Public Use
  Company Number: FR-AVENTIS-200814416FR

PATIENT
  Age: 87 Year
  Sex: Female

DRUGS (15)
  1. LOVENOX [Suspect]
     Route: 058
     Dates: start: 20081022, end: 20081027
  2. TOPALGIC [Suspect]
     Route: 042
     Dates: start: 20081022, end: 20081027
  3. SPASFON                            /00934601/ [Suspect]
     Route: 042
  4. PRIMPERAN                          /00041901/ [Suspect]
     Indication: NAUSEA
     Route: 042
     Dates: start: 20081022, end: 20081027
  5. EUPANTOL                           /01263201/ [Suspect]
     Route: 048
     Dates: start: 20081022, end: 20081027
  6. VITAMIN K1 [Suspect]
     Indication: HAEMORRHAGE PROPHYLAXIS
     Route: 042
     Dates: start: 20081022, end: 20081027
  7. SOLUTIONS FOR PARENTERAL NUTRITION [Suspect]
     Indication: PARENTERAL NUTRITION
     Route: 042
     Dates: start: 20081022, end: 20081027
  8. ACUPAN [Suspect]
     Route: 042
     Dates: start: 20081024, end: 20081027
  9. APROVEL [Concomitant]
     Indication: DRUG USE FOR UNKNOWN INDICATION
  10. NITROGLYCERIN [Concomitant]
     Indication: DRUG USE FOR UNKNOWN INDICATION
  11. ALPRAZOLAM [Concomitant]
     Indication: DRUG USE FOR UNKNOWN INDICATION
  12. METEOSPASMYL                       /01017401/ [Concomitant]
     Indication: DRUG USE FOR UNKNOWN INDICATION
  13. DERMOVAL                           /00008501/ [Concomitant]
     Indication: DRUG USE FOR UNKNOWN INDICATION
  14. OPHTHALMOLOGICALS [Concomitant]
     Indication: DRUG USE FOR UNKNOWN INDICATION
  15. RHINOFLUIMUCIL                     /00851901/ [Concomitant]
     Indication: DRUG USE FOR UNKNOWN INDICATION

REACTIONS (2)
  - RASH MACULAR [None]
  - RASH PUSTULAR [None]
